FAERS Safety Report 9209953 (Version 2)
Quarter: 2013Q2

REPORT INFORMATION
  Report Type: Report from Study
  Country: CA (occurrence: CA)
  Receive Date: 20130404
  Receipt Date: 20130408
  Transmission Date: 20140414
  Serious: Yes (Other)
  Sender: FDA-Public Use
  Company Number: CA-JNJFOC-20130401625

PATIENT
  Age: 22 Year
  Sex: Female
  Weight: 63.5 kg

DRUGS (1)
  1. SIMPONI [Suspect]
     Indication: RHEUMATOID ARTHRITIS
     Route: 058
     Dates: start: 20121123

REACTIONS (6)
  - Dyspnoea [Unknown]
  - Painful respiration [Unknown]
  - Insomnia [Unknown]
  - Joint effusion [Unknown]
  - Drug dose omission [Unknown]
  - Device failure [Unknown]
